FAERS Safety Report 5004277-3 (Version None)
Quarter: 2006Q2

REPORT INFORMATION
  Report Type: 
  Country: None (occurrence: None)
  Receive Date: 20060511
  Receipt Date: 20060427
  Transmission Date: 20061013
  Serious: Yes (Hospitalization)
  Sender: FDA-Public Use
  Company Number: 224588

PATIENT
  Age: 66 Year
  Sex: Male
  Weight: 87.1 kg

DRUGS (1)
  1. RITUXIMAB (RITUXIMAB)CONC FOR SOLUTION FOR INFUSION [Suspect]
     Indication: MULTIPLE SCLEROSIS
     Dosage: 1000 MG, DAYS 1 + 15, INTRAVENOUS
     Route: 042
     Dates: start: 20051005

REACTIONS (1)
  - DISORIENTATION [None]
